FAERS Safety Report 23265697 (Version 2)
Quarter: 2023Q4

REPORT INFORMATION
  Report Type: Report from Study
  Country: US (occurrence: US)
  Receive Date: 20231206
  Receipt Date: 20231215
  Transmission Date: 20240110
  Serious: Yes (Hospitalization)
  Sender: FDA-Public Use
  Company Number: US-009507513-2311USA011514

PATIENT
  Sex: Female

DRUGS (4)
  1. PEMBROLIZUMAB [Suspect]
     Active Substance: PEMBROLIZUMAB
     Indication: Triple negative breast cancer
     Dosage: 200 MILLIGRAM, Q3W, STRENGTH:100 MILLIGRAM
     Route: 042
     Dates: start: 202308
  2. CARBOPLATIN [Suspect]
     Active Substance: CARBOPLATIN
     Indication: Triple negative breast cancer
     Dosage: 1 TIME PER WEEK FOR 12 WEEKS
     Dates: start: 202308, end: 2023
  3. TAXOL [Suspect]
     Active Substance: PACLITAXEL
     Indication: Triple negative breast cancer
     Dosage: DOSE UNKNOWN EVERY WEEK FOR 12 WEEKS
     Dates: start: 202308
  4. TAXOL [Suspect]
     Active Substance: PACLITAXEL
     Dosage: DECREASED BY 20MG/20MG LESS
     Dates: start: 2023

REACTIONS (12)
  - White blood cell count decreased [Recovering/Resolving]
  - Oropharyngeal pain [Recovering/Resolving]
  - Myalgia [Recovering/Resolving]
  - Mastication disorder [Recovering/Resolving]
  - Malaise [Unknown]
  - Adverse drug reaction [Unknown]
  - Feeling abnormal [Unknown]
  - Gastrointestinal inflammation [Unknown]
  - Malaise [Unknown]
  - Adverse drug reaction [Unknown]
  - Feeling abnormal [Unknown]
  - Gastrointestinal inflammation [Unknown]

NARRATIVE: CASE EVENT DATE: 20230101
